FAERS Safety Report 24107719 (Version 1)
Quarter: 2024Q3

REPORT INFORMATION
  Report Type: Report from Study
  Country: CO (occurrence: None)
  Receive Date: 20240718
  Receipt Date: 20240718
  Transmission Date: 20241016
  Serious: Yes (Other)
  Sender: ASTRAZENECA
  Company Number: 2020SE64220

PATIENT
  Age: 22128 Day
  Sex: Female

DRUGS (1)
  1. BRILINTA [Suspect]
     Active Substance: TICAGRELOR
     Indication: Acute coronary syndrome
     Route: 048
     Dates: start: 20191106

REACTIONS (7)
  - Suffocation feeling [Not Recovered/Not Resolved]
  - Dizziness [Not Recovered/Not Resolved]
  - Pain [Not Recovered/Not Resolved]
  - Chest pain [Not Recovered/Not Resolved]
  - Chest discomfort [Not Recovered/Not Resolved]
  - Back pain [Not Recovered/Not Resolved]
  - Off label use [Recovered/Resolved]

NARRATIVE: CASE EVENT DATE: 20191106
